FAERS Safety Report 7565277-2 (Version None)
Quarter: 2011Q2

REPORT INFORMATION
  Report Type: 
  Country: None (occurrence: None)
  Receive Date: 20110622
  Receipt Date: 20110613
  Transmission Date: 20111010
  Serious: Yes (Other)
  Sender: FDA-Public Use
  Company Number: IT-BRISTOL-MYERS SQUIBB COMPANY-14069710

PATIENT
  Age: 76 Year
  Sex: Male

DRUGS (5)
  1. PLACEBO [Suspect]
     Indication: THROMBOSIS PROPHYLAXIS
     Route: 048
     Dates: start: 20080125, end: 20080205
  2. DIGITALIS TAB [Concomitant]
  3. RAMIPRIL [Concomitant]
  4. WARFARIN SODIUM [Suspect]
     Indication: THROMBOSIS PROPHYLAXIS
     Dosage: LAST DOSE GIVEN ON 05-JAN-2008
     Route: 048
     Dates: start: 20080125, end: 20080205
  5. AMIODARONE HCL [Concomitant]

REACTIONS (1)
  - DYSPEPSIA [None]
